FAERS Safety Report 5936184-3 (Version None)
Quarter: 2008Q4

REPORT INFORMATION
  Report Type: 
  Country: None (occurrence: None)
  Receive Date: 20081028
  Receipt Date: 20081013
  Transmission Date: 20090506
  Serious: Yes (Hospitalization)
  Sender: FDA-Public Use
  Company Number: DSA_32518_2008

PATIENT
  Age: 64 Year
  Sex: Female

DRUGS (4)
  1. ENALAPRIL MALEATE [Suspect]
     Indication: LABILE HYPERTENSION
     Dosage: (40 MG QD ORAL), (60 MG QD ORAL), (20 MG QD ORAL)
     Route: 048
     Dates: start: 19830101, end: 20060101
  2. ENALAPRIL MALEATE [Suspect]
     Indication: LABILE HYPERTENSION
     Dosage: (40 MG QD ORAL), (60 MG QD ORAL), (20 MG QD ORAL)
     Route: 048
     Dates: start: 20060101, end: 20080101
  3. ENALAPRIL MALEATE [Suspect]
     Indication: LABILE HYPERTENSION
     Dosage: (40 MG QD ORAL), (60 MG QD ORAL), (20 MG QD ORAL)
     Route: 048
     Dates: start: 20080101
  4. ATACAND [Concomitant]

REACTIONS (6)
  - ANKLE FRACTURE [None]
  - BLOOD PRESSURE INCREASED [None]
  - COUGH [None]
  - DEHYDRATION [None]
  - DIARRHOEA [None]
  - EXTRASYSTOLES [None]
